APPROVED DRUG PRODUCT: CLARINEX
Active Ingredient: DESLORATADINE
Strength: 5MG
Dosage Form/Route: TABLET;ORAL
Application: N021165 | Product #001 | TE Code: AB
Applicant: ORGANON LLC A SUB OF ORGANON AND CO
Approved: Dec 21, 2001 | RLD: Yes | RS: Yes | Type: RX